FAERS Safety Report 5608971-2 (Version None)
Quarter: 2008Q1

REPORT INFORMATION
  Report Type: 
  Country: None (occurrence: None)
  Receive Date: 20080131
  Receipt Date: 20080125
  Transmission Date: 20080703
  Serious: Yes (Hospitalization)
  Sender: FDA-Public Use
  Company Number: GB-WYE-G00952408

PATIENT
  Age: 57 Year
  Sex: Female

DRUGS (6)
  1. PREMARIN [Suspect]
     Indication: HORMONE REPLACEMENT THERAPY
     Route: 048
     Dates: start: 20060214
  2. PARACETAMOL [Concomitant]
     Dosage: 100MG AS NECESSARY
     Route: 048
  3. FEXOFENADINE [Concomitant]
     Indication: HYPERSENSITIVITY
     Route: 048
     Dates: start: 20030101
  4. PROGESTERONE [Suspect]
     Indication: HORMONE REPLACEMENT THERAPY
     Dosage: UNKNOWN DOSE FOR 12 ALTERNATE DAYS EVERY OTHER MONTH
     Dates: start: 20051025
  5. PROGESTERONE [Suspect]
     Dosage: UNKNOWN DOSE FOR 12 ALTERNATE DAYS EVERY OTHER MONTH
  6. AMITRIPTYLINE HCL [Concomitant]
     Indication: MYALGIA
     Route: 048
     Dates: start: 20071130

REACTIONS (4)
  - BODY TEMPERATURE INCREASED [None]
  - COLD SWEAT [None]
  - HEART RATE INCREASED [None]
  - PYREXIA [None]
